FAERS Safety Report 10098064 (Version 1)
Quarter: 2014Q2

REPORT INFORMATION
  Report Type: Spontaneous
  Country: US (occurrence: None)
  Receive Date: 20140421
  Receipt Date: 20140421
  Transmission Date: 20141212
  Serious: Yes (Hospitalization, Other)
  Sender: FDA-Public Use
  Company Number: 2014P1003049

PATIENT
  Age: 31 Year
  Sex: Male

DRUGS (1)
  1. MYORISAN [Suspect]
     Dates: start: 20140305

REACTIONS (1)
  - Investigation [None]
